APPROVED DRUG PRODUCT: CARBOPLATIN
Active Ingredient: CARBOPLATIN
Strength: 450MG/VIAL
Dosage Form/Route: INJECTABLE;INJECTION
Application: A076099 | Product #003
Applicant: HIKMA PHARMACEUTICALS USA INC
Approved: Oct 14, 2004 | RLD: No | RS: No | Type: DISCN